FAERS Safety Report 4927977-X (Version None)
Quarter: 2006Q1

REPORT INFORMATION
  Report Type: 
  Country: None (occurrence: None)
  Receive Date: 20060131
  Receipt Date: 20051026
  Transmission Date: 20060701
  Serious: No
  Sender: FDA-Public Use
  Company Number: 200516964US

PATIENT
  Age: 63 Year
  Sex: Male

DRUGS (8)
  1. KETEK [Suspect]
     Indication: LOWER RESPIRATORY TRACT INFECTION
     Dosage: 400 (2 TABS) MG QD PO
     Route: 048
  2. HYDRALAZINE [Concomitant]
  3. AVAPRO [Concomitant]
  4. ELAVIL [Concomitant]
  5. LOSPRIN [Concomitant]
  6. ISOSORBIDE MONONITRATE [Concomitant]
  7. PRILOSEC [Concomitant]
  8. DOXAZOSIN [Concomitant]

REACTIONS (1)
  - ABDOMINAL PAIN UPPER [None]
